FAERS Safety Report 19267322 (Version 3)
Quarter: 2021Q2

REPORT INFORMATION
  Report Type: Spontaneous
  Country: IE (occurrence: IE)
  Receive Date: 20210517
  Receipt Date: 20210602
  Transmission Date: 20210717
  Serious: Yes (Hospitalization, Other)
  Sender: FDA-Public Use
  Company Number: IE-TAKEDA-2021TEU004728

PATIENT
  Age: 40 Year
  Sex: Female

DRUGS (2)
  1. THEOPHYLLINE [Suspect]
     Active Substance: THEOPHYLLINE ANHYDROUS
     Indication: ASTHMA
     Dosage: 12.6 GRAM
     Route: 065
  2. LANSOPRAZOLE. [Suspect]
     Active Substance: LANSOPRAZOLE
     Indication: PRODUCT USED FOR UNKNOWN INDICATION
     Dosage: 630 MILLIGRAM
     Route: 065

REACTIONS (21)
  - Magnetic resonance imaging head abnormal [Unknown]
  - Seizure [Recovered/Resolved]
  - Intentional overdose [Recovered/Resolved]
  - Vomiting [Recovered/Resolved]
  - Acidosis [Recovered/Resolved]
  - Abdominal pain [Recovered/Resolved]
  - Hyperhidrosis [Recovered/Resolved]
  - Toxicity to various agents [Recovered/Resolved]
  - Sinus tachycardia [Recovered/Resolved]
  - Respiratory tract infection [Recovered/Resolved]
  - Hypoxia [Recovered/Resolved]
  - Electroencephalogram abnormal [Unknown]
  - Amnesia [Not Recovered/Not Resolved]
  - Hypertension [Recovered/Resolved]
  - Status epilepticus [Recovered/Resolved]
  - Dizziness [Recovered/Resolved]
  - Brain scan abnormal [Unknown]
  - Amnestic disorder [Unknown]
  - Hypotonia [Recovered/Resolved]
  - Nausea [Recovered/Resolved]
  - Memory impairment [Unknown]
